FAERS Safety Report 4545361-8 (Version None)
Quarter: 2005Q1

REPORT INFORMATION
  Report Type: 
  Country: None (occurrence: None)
  Receive Date: 20050103
  Receipt Date: 20041228
  Transmission Date: 20050727
  Serious: Yes (Hospitalization, Other)
  Sender: FDA-Public Use
  Company Number: HQWYE266728DEC04

PATIENT
  Age: 72 Year
  Sex: Female

DRUGS (2)
  1. CORDARONE [Suspect]
     Indication: ATRIAL FIBRILLATION
     Dosage: 300 MG 1X PER 1 DAY INTRAVENOUS
     Route: 042
     Dates: start: 20041116, end: 20041116
  2. CORDARONE [Suspect]
     Indication: ATRIAL FLUTTER
     Dosage: 300 MG 1X PER 1 DAY INTRAVENOUS
     Route: 042
     Dates: start: 20041116, end: 20041116

REACTIONS (6)
  - ANAPHYLACTOID REACTION [None]
  - BRADYCARDIA [None]
  - DYSPNOEA [None]
  - FLUSHING [None]
  - HYPOTENSION [None]
  - RESPIRATORY DISORDER [None]
